FAERS Safety Report 7201227-6 (Version None)
Quarter: 2010Q4

REPORT INFORMATION
  Report Type: 
  Country: None (occurrence: None)
  Receive Date: 20101227
  Receipt Date: 20101227
  Transmission Date: 20110411
  Serious: Yes (Other)
  Sender: FDA-Public Use
  Company Number: None

PATIENT
  Age: 47 Year
  Sex: Female
  Weight: 99.7913 kg

DRUGS (1)
  1. SPIRONOLACTONE 25MG AMNEAL [Suspect]
     Indication: HYPERTENSION
     Dosage: 25MG ONCE DAILY PO
     Route: 048
     Dates: start: 20101124, end: 20101124

REACTIONS (7)
  - AGGRESSION [None]
  - DISORIENTATION [None]
  - DIZZINESS [None]
  - DYSARTHRIA [None]
  - HALLUCINATION, AUDITORY [None]
  - PERSONALITY CHANGE [None]
  - PRODUCT SUBSTITUTION ISSUE [None]
